FAERS Safety Report 8318427-4 (Version None)
Quarter: 2012Q2

REPORT INFORMATION
  Report Type: 
  Country: None (occurrence: None)
  Receive Date: 20120427
  Receipt Date: 20101005
  Transmission Date: 20120825
  Serious: Yes (Hospitalization)
  Sender: FDA-Public Use
  Company Number: US-GLAXOSMITHKLINE-A0885356A

PATIENT
  Age: 59 Year
  Sex: Male
  Weight: 74.5 kg

DRUGS (6)
  1. BENICAR [Concomitant]
     Indication: HYPERTENSION
     Route: 048
     Dates: start: 20071001
  2. ERLOTINIB HYDROCHLORIDE [Suspect]
     Indication: NON-SMALL CELL LUNG CANCER
     Dosage: 150MG PER DAY
     Route: 048
     Dates: start: 20100902
  3. MORPHINE [Concomitant]
     Indication: PAIN
     Route: 048
     Dates: start: 20091118
  4. LEXAPRO [Concomitant]
     Indication: DEPRESSION
     Route: 048
     Dates: start: 20100820
  5. VOTRIENT [Suspect]
     Indication: NON-SMALL CELL LUNG CANCER
     Dosage: 600MG PER DAY
     Route: 048
     Dates: start: 20100902
  6. IMODIUM [Concomitant]
     Indication: DIARRHOEA
     Route: 048
     Dates: start: 20100923

REACTIONS (4)
  - DEHYDRATION [None]
  - NAUSEA [None]
  - DIZZINESS [None]
  - VOMITING [None]
